FAERS Safety Report 7128300-5 (Version None)
Quarter: 2010Q4

REPORT INFORMATION
  Report Type: 
  Country: None (occurrence: None)
  Receive Date: 20101130
  Receipt Date: 20101117
  Transmission Date: 20110411
  Serious: Yes (Hospitalization)
  Sender: FDA-Public Use
  Company Number: PHHY2010BR78066

PATIENT
  Sex: Female

DRUGS (5)
  1. DIOVAN [Suspect]
     Indication: HYPERTENSION
     Dosage: 1 TABLET DAILY
     Route: 048
  2. ZETSIM [Concomitant]
  3. NEURALGEN [Concomitant]
  4. ATENOLOL [Concomitant]
  5. PLOROCETINA [Concomitant]

REACTIONS (2)
  - ABDOMINAL DISTENSION [None]
  - APPENDICECTOMY [None]
